FAERS Safety Report 9298051 (Version 1)
Quarter: 2013Q2

REPORT INFORMATION
  Report Type: Spontaneous
  Country: US (occurrence: US)
  Receive Date: 20130520
  Receipt Date: 20130520
  Transmission Date: 20140414
  Serious: Yes (Hospitalization, Other)
  Sender: FDA-Public Use
  Company Number: US-ELI_LILLY_AND_COMPANY-US201305002092

PATIENT
  Age: 20 Year
  Sex: Female

DRUGS (6)
  1. LISPRO [Suspect]
     Dosage: UNK, TID
     Route: 065
  2. LISPRO [Suspect]
     Dosage: 7 IU, TID
     Route: 065
  3. LANTUS [Concomitant]
     Dosage: 30 IU, QD
  4. LANTUS [Concomitant]
     Dosage: 5 IU, TID
  5. LANTUS [Concomitant]
     Dosage: UNK, TID
  6. LISINOPRIL [Concomitant]
     Dosage: 10 MG, QD

REACTIONS (12)
  - Diabetic ketoacidosis [Recovered/Resolved]
  - Generalised oedema [Recovered/Resolved]
  - Dyspnoea [Recovered/Resolved]
  - Weight increased [Recovered/Resolved]
  - Anaemia [Recovered/Resolved]
  - Blood alkaline phosphatase increased [Recovered/Resolved]
  - Alanine aminotransferase increased [Recovered/Resolved]
  - Aspartate aminotransferase increased [Recovered/Resolved]
  - Abdominal pain [None]
  - Treatment noncompliance [None]
  - Glycosylated haemoglobin increased [None]
  - Oedema [None]
